FAERS Safety Report 5654591-3 (Version None)
Quarter: 2008Q1

REPORT INFORMATION
  Report Type: 
  Country: None (occurrence: None)
  Receive Date: 20080307
  Receipt Date: 20080225
  Transmission Date: 20080703
  Serious: Yes (Hospitalization)
  Sender: FDA-Public Use
  Company Number: SE-JNJFOC-20080200012

PATIENT
  Sex: Male
  Weight: 113 kg

DRUGS (9)
  1. PALIPERIDONE [Suspect]
     Route: 048
  2. PALIPERIDONE [Suspect]
     Route: 048
  3. PALIPERIDONE [Suspect]
     Indication: SCHIZOPHRENIA
     Route: 048
  4. PROPAVAN [Concomitant]
     Indication: SLEEP DISORDER
     Route: 048
  5. ZOPICLON [Concomitant]
     Indication: SLEEP DISORDER
     Route: 048
  6. VENTOLIN [Concomitant]
     Indication: ASTHMA
     Route: 048
  7. VENTOLIN [Concomitant]
     Route: 048
  8. VENTOLIN [Concomitant]
     Route: 045
  9. THERALEN [Concomitant]
     Indication: SLEEP DISORDER
     Route: 048

REACTIONS (4)
  - DISORIENTATION [None]
  - DISTURBANCE IN ATTENTION [None]
  - HALLUCINATION [None]
  - TREATMENT NONCOMPLIANCE [None]
